FAERS Safety Report 8615095-9 (Version None)
Quarter: 2012Q3

REPORT INFORMATION
  Report Type: 
  Country: None (occurrence: None)
  Receive Date: 20120823
  Receipt Date: 20120816
  Transmission Date: 20120928
  Serious: Yes (Hospitalization)
  Sender: FDA-Public Use
  Company Number: PHEH2012US015593

PATIENT
  Sex: Male

DRUGS (5)
  1. GILENYA [Suspect]
     Indication: PRIMARY PROGRESSIVE MULTIPLE SCLEROSIS
     Dates: start: 20110501
  2. CRESTOR [Concomitant]
     Dosage: 20 MG, DAILY
     Route: 048
  3. LEVITRA [Concomitant]
     Route: 048
  4. VESICARE [Concomitant]
     Route: 048
  5. AMITRIPTYLINE HYDROCHLORIDE [Concomitant]
     Dosage: 10 MG AT BED TIME
     Route: 048

REACTIONS (1)
  - BLOOD PRESSURE DECREASED [None]
